FAERS Safety Report 6613294-9 (Version None)
Quarter: 2010Q1

REPORT INFORMATION
  Report Type: 
  Country: None (occurrence: None)
  Receive Date: 20100304
  Receipt Date: 20100220
  Transmission Date: 20100710
  Serious: Yes (Other)
  Sender: FDA-Public Use
  Company Number: PHHY2010DE10484

PATIENT
  Sex: Male

DRUGS (7)
  1. LEPONEX [Suspect]
     Dosage: 250 MG/DAY
     Route: 048
     Dates: start: 20100101, end: 20100119
  2. LEPONEX [Suspect]
     Dosage: 250 MG/DAY
     Route: 048
     Dates: start: 20100120, end: 20100219
  3. LEPONEX [Suspect]
     Dosage: 200 MG/DAY
     Route: 048
     Dates: start: 20100220
  4. VENLAFAXINE [Concomitant]
     Dosage: UNK
  5. ASPIRIN [Concomitant]
     Dosage: UNK
     Dates: start: 20100119, end: 20100219
  6. SOLIAN [Concomitant]
     Dosage: UNK
  7. ORFIRIL [Concomitant]
     Dosage: UNK

REACTIONS (6)
  - COLITIS [None]
  - DIARRHOEA [None]
  - HYPONATRAEMIA [None]
  - LEUKOCYTOSIS [None]
  - WEIGHT DECREASED [None]
  - YERSINIA INFECTION [None]
